FAERS Safety Report 4714256-9 (Version None)
Quarter: 2005Q3

REPORT INFORMATION
  Report Type: 
  Country: None (occurrence: None)
  Receive Date: 20050714
  Receipt Date: 20050708
  Transmission Date: 20060218
  Serious: Yes (Other)
  Sender: FDA-Public Use
  Company Number: PHBS2005ES09783

PATIENT
  Age: 78 Year
  Sex: Male

DRUGS (1)
  1. ZOMETA [Suspect]
     Indication: BLADDER CANCER
     Route: 065
     Dates: start: 20020401, end: 20040901

REACTIONS (2)
  - BONE DISORDER [None]
  - GINGIVAL ULCERATION [None]
